FAERS Safety Report 5473321-1 (Version None)
Quarter: 2007Q4

REPORT INFORMATION
  Report Type: 
  Country: None (occurrence: None)
  Receive Date: 20071001
  Receipt Date: 20070920
  Transmission Date: 20080405
  Serious: Yes (Other)
  Sender: FDA-Public Use
  Company Number: US-JNJFOC-20070904544

PATIENT
  Sex: Female
  Weight: 86.18 kg

DRUGS (8)
  1. DURAGESIC-100 [Suspect]
     Indication: PAIN
     Route: 062
  2. ZOLOFT [Concomitant]
     Indication: DEPRESSION
     Route: 048
  3. LASIX [Concomitant]
     Indication: SWELLING
     Route: 048
  4. PROVIGIL [Concomitant]
     Indication: ANXIETY
     Route: 048
  5. LIPITOR [Concomitant]
     Indication: BLOOD CHOLESTEROL
     Route: 048
  6. ZYRTEC [Concomitant]
     Indication: URTICARIA
     Route: 048
  7. LYRICA [Concomitant]
     Indication: FIBROMYALGIA
     Route: 048
  8. KLONOPIN [Concomitant]
     Indication: ANXIETY
     Route: 048

REACTIONS (5)
  - ARTHRALGIA [None]
  - CONNECTIVE TISSUE DISORDER [None]
  - DERMATITIS CONTACT [None]
  - DRUG ADMINISTERED AT INAPPROPRIATE SITE [None]
  - FALL [None]
